FAERS Safety Report 8098420 (Version 13)
Quarter: 2016Q4

REPORT INFORMATION
  Report Type: Spontaneous
  Country: US (occurrence: US)
  Receive Date: 20110819
  Receipt Date: 20161108
  Transmission Date: 20170207
  Serious: Yes (Hospitalization, Disabling, Other)
  Sender: FDA-Public Use
  Company Number: US-009507513-1108USA02082

PATIENT
  Sex: Female
  Weight: 74.84 kg

DRUGS (8)
  1. FOSAMAX [Suspect]
     Active Substance: ALENDRONATE SODIUM
     Indication: OSTEOPOROSIS
     Dosage: 70 MG, QW
     Route: 048
     Dates: start: 20020402, end: 20100430
  2. ADVAIR HFA [Concomitant]
     Active Substance: FLUTICASONE PROPIONATE\SALMETEROL XINAFOATE
     Route: 065
  3. COMBIVENT [Concomitant]
     Active Substance: ALBUTEROL SULFATE\IPRATROPIUM BROMIDE
     Route: 065
  4. BONIVA [Suspect]
     Active Substance: IBANDRONATE SODIUM
     Indication: OSTEOPOROSIS
     Dosage: 150 MG, QM
     Route: 048
     Dates: start: 20080125
  5. NORVASC [Concomitant]
     Active Substance: AMLODIPINE BESYLATE
     Dosage: 5 MG, QD
     Route: 065
  6. NORVASC [Concomitant]
     Active Substance: AMLODIPINE BESYLATE
     Dosage: 10 MG, QD
  7. CALCIUM (UNSPECIFIED) [Concomitant]
     Active Substance: CALCIUM
     Route: 065
  8. ALENDRONATE SODIUM. [Suspect]
     Active Substance: ALENDRONATE SODIUM
     Dosage: 70 MG, UNK
     Route: 048
     Dates: start: 20081006, end: 20090719

REACTIONS (122)
  - Femur fracture [Recovered/Resolved]
  - Gastric disorder [Unknown]
  - Tibia fracture [Unknown]
  - Cholecystectomy [Unknown]
  - Tibia fracture [Recovering/Resolving]
  - Amyotrophic lateral sclerosis [Unknown]
  - Femur fracture [Not Recovered/Not Resolved]
  - Arthralgia [Unknown]
  - Urinary tract infection [Unknown]
  - Sleep apnoea syndrome [Unknown]
  - Peripheral sensory neuropathy [Unknown]
  - Post-traumatic headache [Unknown]
  - Muscle disorder [Unknown]
  - Disturbance in attention [Unknown]
  - Abscess limb [Unknown]
  - Urinary incontinence [Unknown]
  - Fall [Unknown]
  - Dysphagia [Unknown]
  - Myalgia [Unknown]
  - Oesophagitis [Unknown]
  - Myocardial infarction [Unknown]
  - Fall [Unknown]
  - Radicular pain [Unknown]
  - Peripheral nerve paresis [Unknown]
  - Snoring [Unknown]
  - Tremor [Unknown]
  - Fall [Unknown]
  - Contusion [Unknown]
  - Dyspnoea exertional [Unknown]
  - Pruritus [Unknown]
  - Arthralgia [Unknown]
  - Cerebrovascular accident [Unknown]
  - Stress fracture [Not Recovered/Not Resolved]
  - Appendicectomy [Unknown]
  - Motor neurone disease [Unknown]
  - Varices oesophageal [Unknown]
  - Fall [Unknown]
  - Night sweats [Unknown]
  - Oropharyngeal pain [Unknown]
  - Oropharyngeal pain [Unknown]
  - Decubitus ulcer [Unknown]
  - Weight decreased [Unknown]
  - Dyspnoea [Unknown]
  - Head injury [Unknown]
  - Pyrexia [Unknown]
  - Gastrooesophageal reflux disease [Not Recovered/Not Resolved]
  - Carpal tunnel syndrome [Unknown]
  - Calcium deficiency [Unknown]
  - Hyperthyroidism [Unknown]
  - Cardiovascular disorder [Unknown]
  - Fall [Unknown]
  - Ligament sprain [Unknown]
  - Weight decreased [Unknown]
  - Chronic obstructive pulmonary disease [Unknown]
  - Bradycardia [Unknown]
  - Left ventricle outflow tract obstruction [Unknown]
  - Tongue disorder [Unknown]
  - Anxiety [Unknown]
  - Pain in extremity [Unknown]
  - Myalgia [Unknown]
  - Respiratory failure [Unknown]
  - Osteoporosis [Not Recovered/Not Resolved]
  - Low turnover osteopathy [Not Recovered/Not Resolved]
  - Mobility decreased [Not Recovered/Not Resolved]
  - Hypotension [Unknown]
  - Liver function test abnormal [Unknown]
  - Depression [Unknown]
  - Nervousness [Unknown]
  - Poor quality sleep [Unknown]
  - Intervertebral disc protrusion [Unknown]
  - Head injury [Unknown]
  - Paraesthesia [Unknown]
  - Cardiomegaly [Unknown]
  - Hypertrophic cardiomyopathy [Unknown]
  - Headache [Unknown]
  - Tonsillectomy [Unknown]
  - Spinal muscular atrophy [Unknown]
  - Peroneal nerve palsy [Unknown]
  - Barrett^s oesophagus [Unknown]
  - Joint effusion [Unknown]
  - Thyroid mass [Unknown]
  - Anxiety [Unknown]
  - Bursitis [Unknown]
  - Angina pectoris [Unknown]
  - Fatigue [Unknown]
  - Coagulation factor deficiency [Unknown]
  - Hypoaesthesia [Unknown]
  - Cellulitis [Unknown]
  - Pain [Not Recovered/Not Resolved]
  - Diastolic dysfunction [Unknown]
  - Drug ineffective [Unknown]
  - Vitamin D deficiency [Unknown]
  - Chronic inflammatory demyelinating polyradiculoneuropathy [Not Recovered/Not Resolved]
  - Limb injury [Unknown]
  - Fall [Unknown]
  - Anaemia [Unknown]
  - Arthritis [Unknown]
  - Liver disorder [Unknown]
  - Acute sinusitis [Recovered/Resolved]
  - Road traffic accident [Unknown]
  - Cough [Unknown]
  - Muscle atrophy [Unknown]
  - Emotional disorder [Unknown]
  - Musculoskeletal discomfort [Unknown]
  - Abdominal pain [Unknown]
  - Chronic inflammatory demyelinating polyradiculoneuropathy [Not Recovered/Not Resolved]
  - Osteopenia [Unknown]
  - Osteoarthritis [Unknown]
  - Fall [Unknown]
  - Motor neurone disease [Unknown]
  - Occult blood [Unknown]
  - Radiculopathy [Unknown]
  - Migraine [Unknown]
  - Tinnitus [Unknown]
  - Extrasystoles [Unknown]
  - Increased tendency to bruise [Unknown]
  - Spinal osteoarthritis [Unknown]
  - Contusion [Unknown]
  - Diarrhoea [Unknown]
  - Dysphagia [Unknown]
  - Back pain [Unknown]
  - Odynophagia [Unknown]

NARRATIVE: CASE EVENT DATE: 20020815
